FAERS Safety Report 9375730 (Version 1)
Quarter: 2013Q2

REPORT INFORMATION
  Report Type: Spontaneous
  Country: IT (occurrence: IT)
  Receive Date: 20130628
  Receipt Date: 20130628
  Transmission Date: 20140414
  Serious: Yes (Hospitalization)
  Sender: FDA-Public Use
  Company Number: IT-ASTRAZENECA-2013SE48023

PATIENT
  Age: 9309 Day
  Sex: Male

DRUGS (8)
  1. SEROQUEL [Suspect]
     Indication: BIPOLAR DISORDER
     Route: 048
     Dates: start: 20130510, end: 20130606
  2. SEROQUEL [Suspect]
     Indication: BIPOLAR DISORDER
     Route: 048
  3. DEPAKIN [Suspect]
     Indication: BIPOLAR DISORDER
     Dosage: 200 MG/ML, 800 MG DAILY
     Route: 048
     Dates: start: 20130419
  4. DEPAKIN [Suspect]
     Indication: BIPOLAR DISORDER
     Route: 048
     Dates: end: 20130606
  5. BRUFEN [Suspect]
  6. CARBOLITHIUM [Suspect]
     Indication: BIPOLAR DISORDER
     Route: 048
     Dates: start: 20130510
  7. CARBOLITHIUM [Suspect]
     Indication: BIPOLAR DISORDER
     Route: 048
     Dates: end: 20130606
  8. ZYPREXA [Suspect]
     Indication: BIPOLAR DISORDER
     Route: 048
     Dates: start: 20130507, end: 20130606

REACTIONS (1)
  - Drug reaction with eosinophilia and systemic symptoms [Recovering/Resolving]
